FAERS Safety Report 24937648 (Version 1)
Quarter: 2025Q1

REPORT INFORMATION
  Report Type: Spontaneous
  Country: CA (occurrence: CA)
  Receive Date: 20250206
  Receipt Date: 20250206
  Transmission Date: 20250409
  Serious: Yes (Other)
  Sender: B BRAUN
  Company Number: CA-B.Braun Medical Inc.-2170618

PATIENT
  Age: 19 Year
  Sex: Female

DRUGS (5)
  1. LIDOCAINE HYDROCHLORIDE [Suspect]
     Active Substance: LIDOCAINE HYDROCHLORIDE
  2. FENTANYL [Suspect]
     Active Substance: FENTANYL
  3. PREDNISONE [Concomitant]
     Active Substance: PREDNISONE
  4. MIDAZOLAM [Suspect]
     Active Substance: MIDAZOLAM
  5. SODIUM CHLORIDE [Suspect]
     Active Substance: SODIUM CHLORIDE

REACTIONS (2)
  - Hypoxia [Unknown]
  - Oxygen therapy [Unknown]
